FAERS Safety Report 20684725 (Version 1)
Quarter: 2022Q2

REPORT INFORMATION
  Report Type: Other
  Country: US (occurrence: None)
  Receive Date: 20220407
  Receipt Date: 20220407
  Transmission Date: 20220721
  Serious: Yes (Other)
  Sender: FDA-Public Use
  Company Number: US-Navinta LLC-000245

PATIENT

DRUGS (1)
  1. RIBAVIRIN [Suspect]
     Active Substance: RIBAVIRIN
     Indication: Oropharyngeal squamous cell carcinoma
     Route: 048

REACTIONS (4)
  - Disease progression [Unknown]
  - Oropharyngeal cancer [Unknown]
  - Toxicity to various agents [Unknown]
  - Anaemia [Unknown]
